FAERS Safety Report 5600509-9 (Version None)
Quarter: 2008Q1

REPORT INFORMATION
  Report Type: 
  Country: None (occurrence: None)
  Receive Date: 20080123
  Receipt Date: 20080115
  Transmission Date: 20080703
  Serious: Yes (Hospitalization, Disabling)
  Sender: FDA-Public Use
  Company Number: US-ASTRAZENECA-2007UW17883

PATIENT
  Age: 59 Year
  Sex: Male
  Weight: 118 kg

DRUGS (8)
  1. MEROPENEM [Suspect]
     Indication: ANTIBIOTIC PROPHYLAXIS
     Route: 042
     Dates: start: 20070617, end: 20070620
  2. IDARUBICIN HCL [Suspect]
     Indication: ACUTE MYELOID LEUKAEMIA
     Route: 042
     Dates: start: 20070607, end: 20070609
  3. ETOPOSIDE [Suspect]
     Indication: ACUTE MYELOID LEUKAEMIA
     Route: 042
     Dates: start: 20070607, end: 20070613
  4. CYTARABINE [Suspect]
     Indication: ACUTE MYELOID LEUKAEMIA
     Route: 042
     Dates: start: 20070607, end: 20070613
  5. BLINDED THERAPY [Suspect]
     Route: 042
     Dates: start: 20070604, end: 20070616
  6. VANCOMYCIN [Suspect]
     Indication: ANTIBIOTIC PROPHYLAXIS
     Route: 042
     Dates: start: 20070616, end: 20070621
  7. AMBISOME [Suspect]
     Indication: ANTIBIOTIC PROPHYLAXIS
     Route: 042
     Dates: start: 20070617, end: 20070619
  8. AZITHROMYCIN [Concomitant]
     Route: 042
     Dates: start: 20070620, end: 20070624

REACTIONS (6)
  - DRUG TOXICITY [None]
  - ENCEPHALOPATHY [None]
  - HEPATITIS ACUTE [None]
  - HEPATORENAL FAILURE [None]
  - NEPHRITIS INTERSTITIAL [None]
  - SEPSIS [None]
